FAERS Safety Report 7340479-9 (Version None)
Quarter: 2011Q1

REPORT INFORMATION
  Report Type: 
  Country: None (occurrence: None)
  Receive Date: 20110228
  Receipt Date: 20110208
  Transmission Date: 20110831
  Serious: Yes (Death)
  Sender: FDA-Public Use
  Company Number: 2011020077

PATIENT
  Age: 27 Year
  Sex: Female

DRUGS (4)
  1. CARISOPRODOL [Suspect]
     Dosage: ORAL
     Route: 048
  2. METHADONE (METHADONE) [Suspect]
     Dosage: ORAL
     Route: 048
  3. METHAMPHETAMINE (METHAMPHETAMINE) [Suspect]
  4. COCAINE (COCAINE) [Suspect]

REACTIONS (2)
  - CARDIAC ARREST [None]
  - RESPIRATORY ARREST [None]
